FAERS Safety Report 16898575 (Version 1)
Quarter: 2019Q4

REPORT INFORMATION
  Report Type: Spontaneous
  Country: US (occurrence: US)
  Receive Date: 20191009
  Receipt Date: 20191009
  Transmission Date: 20200122
  Serious: Yes (Other)
  Sender: FDA-Public Use
  Company Number: US-FRESENIUS KABI-FK201910882

PATIENT
  Age: 2 Year
  Sex: Male

DRUGS (1)
  1. OMEGAVEN [Suspect]
     Active Substance: FISH OIL
     Indication: ACUTE HEPATIC FAILURE
     Dosage: 0.75 GRAM/KILOGRAM
     Route: 042
     Dates: start: 2019, end: 20190831

REACTIONS (1)
  - Platelet dysfunction [Unknown]

NARRATIVE: CASE EVENT DATE: 20190831
